FAERS Safety Report 19966620 (Version 1)
Quarter: 2021Q4

REPORT INFORMATION
  Report Type: Spontaneous
  Country: US (occurrence: US)
  Receive Date: 20211018
  Receipt Date: 20211018
  Transmission Date: 20220303
  Serious: No
  Sender: FDA-Public Use
  Company Number: US-SA-SAC20211013001366

PATIENT
  Age: 67 Year
  Sex: Female
  Weight: 81.65 kg

DRUGS (4)
  1. ALLEGRA [Suspect]
     Active Substance: FEXOFENADINE HYDROCHLORIDE
     Indication: Antiallergic therapy
     Dosage: 90MG TWICE A DAY BY MOUTH
     Route: 048
  2. HYDROCHLOROTHIAZIDE [Suspect]
     Active Substance: HYDROCHLOROTHIAZIDE
     Indication: Fluid retention
     Dosage: 25MG ONCE A DAY BY MOUTH
  3. HYDROCHLOROTHIAZIDE [Suspect]
     Active Substance: HYDROCHLOROTHIAZIDE
     Indication: Blood pressure measurement
  4. COMIRNATY [Concomitant]
     Active Substance: TOZINAMERAN
     Indication: COVID-19 immunisation
     Dosage: DOSE UNKNOWN, INJECTION IN THE LEFT ARM.
     Dates: start: 20210908

REACTIONS (10)
  - Blood pressure increased [Unknown]
  - Swelling face [Unknown]
  - Pain in extremity [Unknown]
  - Chest pain [Unknown]
  - Feeling abnormal [Unknown]
  - Erythema [Unknown]
  - Pruritus [Unknown]
  - Urticaria [Unknown]
  - Fatigue [Unknown]
  - Wrong technique in product usage process [Unknown]
